FAERS Safety Report 15555033 (Version 1)
Quarter: 2018Q4

REPORT INFORMATION
  Report Type: Spontaneous
  Country: US (occurrence: US)
  Receive Date: 20181026
  Receipt Date: 20181026
  Transmission Date: 20190205
  Serious: Yes (Death)
  Sender: FDA-Public Use
  Company Number: None

PATIENT
  Sex: Male

DRUGS (17)
  1. AMLODIPINE [Concomitant]
     Active Substance: AMLODIPINE BESYLATE
  2. BICALUTAMIDE. [Concomitant]
     Active Substance: BICALUTAMIDE
  3. LANTUS [Concomitant]
     Active Substance: INSULIN GLARGINE
  4. LOSARTAN. [Concomitant]
     Active Substance: LOSARTAN
  5. CALCIUM [Concomitant]
     Active Substance: CALCIUM
  6. FISH OIL [Concomitant]
     Active Substance: FISH OIL
  7. METOPROLOL. [Concomitant]
     Active Substance: METOPROLOL
  8. LUPRON [Suspect]
     Active Substance: LEUPROLIDE ACETATE
     Indication: PROSTATE CANCER
     Dosage: 45 MG INTRAMUSCULAR; EVERY 6 MONTHS
     Route: 030
     Dates: start: 20170414
  9. HUMALOG [Concomitant]
     Active Substance: INSULIN LISPRO
  10. MAGNESIUM [Concomitant]
     Active Substance: MAGNESIUM
  11. PRAVASTATIN. [Concomitant]
     Active Substance: PRAVASTATIN
  12. BUMETANIDE. [Concomitant]
     Active Substance: BUMETANIDE
  13. EUFLEXXA [Concomitant]
     Active Substance: HYALURONATE SODIUM
  14. LEVOTHYROXINE. [Concomitant]
     Active Substance: LEVOTHYROXINE
  15. MULTIVITAMIN [Concomitant]
     Active Substance: VITAMINS
  16. COUMIDAN [Concomitant]
  17. POTASSIUM [Concomitant]
     Active Substance: POTASSIUM

REACTIONS (1)
  - Death [None]
